FAERS Safety Report 4947459-9 (Version None)
Quarter: 2006Q1

REPORT INFORMATION
  Report Type: 
  Country: None (occurrence: None)
  Receive Date: 20060320
  Receipt Date: 20060307
  Transmission Date: 20060701
  Serious: Yes (Hospitalization)
  Sender: FDA-Public Use
  Company Number: IT-JNJFOC-20051100882

PATIENT
  Sex: Male
  Weight: 57 kg

DRUGS (5)
  1. REOPRO [Suspect]
     Dosage: 4.0 ML OF ABCIXIMAB IN 50 ML DILUENT AT 4.2 ML/HOUR, TOTAL INFUSION GIVEN 50.4 ML.
     Route: 042
  2. REOPRO [Suspect]
     Indication: ACUTE MYOCARDIAL INFARCTION
     Route: 042
  3. RETEPLASE [Suspect]
     Indication: ACUTE MYOCARDIAL INFARCTION
     Route: 042
  4. HEPARIN [Concomitant]
     Route: 042
  5. HEPARIN [Concomitant]
     Route: 042

REACTIONS (1)
  - MYOCARDIAL INFARCTION [None]
